FAERS Safety Report 5011020-0 (Version None)
Quarter: 2006Q2

REPORT INFORMATION
  Report Type: 
  Country: None (occurrence: None)
  Receive Date: 20060523
  Receipt Date: 20060510
  Transmission Date: 20061013
  Serious: Yes (Death)
  Sender: FDA-Public Use
  Company Number: 2006BI007074

PATIENT
  Age: 63 Year
  Sex: Female

DRUGS (5)
  1. ZEVALIN [Suspect]
     Indication: CENTRAL NERVOUS SYSTEM LYMPHOMA
     Dosage: 1X; IV
     Route: 042
  2. ZEVALIN [Suspect]
     Indication: CENTRAL NERVOUS SYSTEM LYMPHOMA
     Dosage: 15 MBQ/KG; 1X; IV
     Route: 042
     Dates: start: 20060330, end: 20060330
  3. RITUXIMAB [Concomitant]
  4. RITUXIMAB [Concomitant]
  5. FORTECORTIN [Concomitant]

REACTIONS (4)
  - NEUTROPENIA [None]
  - PNEUMONIA [None]
  - SEPSIS [None]
  - THERAPY NON-RESPONDER [None]
